FAERS Safety Report 19898847 (Version 26)
Quarter: 2022Q3

REPORT INFORMATION
  Report Type: Report from Study
  Country: US (occurrence: US)
  Receive Date: 20210930
  Receipt Date: 20220831
  Transmission Date: 20221027
  Serious: Yes (Hospitalization)
  Sender: FDA-Public Use
  Company Number: NVSC2021US220553

PATIENT
  Age: 59 Year
  Sex: Female
  Weight: 99.773 kg

DRUGS (11)
  1. TREPROSTINIL [Suspect]
     Active Substance: TREPROSTINIL
     Indication: Pulmonary arterial hypertension
     Dosage: 18 NG/KG/MIN, CONT (1 MG/ML CONCENTRATION)
     Route: 042
  2. TREPROSTINIL [Suspect]
     Active Substance: TREPROSTINIL
     Dosage: 20NG/KG/MIN, CONT
     Route: 042
     Dates: start: 20210928
  3. TREPROSTINIL [Suspect]
     Active Substance: TREPROSTINIL
     Dosage: 21 NG/KG/MIN, CONT
     Route: 042
  4. TREPROSTINIL [Suspect]
     Active Substance: TREPROSTINIL
     Dosage: 21 NG/KG/MIN, CONTINUOUS
     Route: 065
  5. TREPROSTINIL [Suspect]
     Active Substance: TREPROSTINIL
     Dosage: 27 NG/KG/MIN, CONTINUOUS
     Route: 042
  6. TREPROSTINIL [Suspect]
     Active Substance: TREPROSTINIL
     Dosage: 36 NG/KG/MIN, CONT, CONCENTRATION 2.5 MG/ML
     Route: 042
  7. TREPROSTINIL [Suspect]
     Active Substance: TREPROSTINIL
     Dosage: 40 NG/KG/MIN, CONT
     Route: 042
     Dates: start: 20210928
  8. TREPROSTINIL [Suspect]
     Active Substance: TREPROSTINIL
     Dosage: 50 NG/KG/MIN, CONT
     Route: 042
     Dates: start: 20210928
  9. OPSUMIT [Suspect]
     Active Substance: MACITENTAN
     Indication: Product used for unknown indication
     Dosage: UNK
     Route: 065
  10. REMODULIN [Suspect]
     Active Substance: TREPROSTINIL
     Indication: Product used for unknown indication
     Dosage: UNK
     Route: 042
  11. SILDENAFIL CITRATE [Concomitant]
     Active Substance: SILDENAFIL CITRATE
     Indication: Product used for unknown indication
     Dosage: UNK
     Route: 065

REACTIONS (20)
  - Device malfunction [Unknown]
  - Insomnia [Unknown]
  - Abdominal hernia [Unknown]
  - Fluid retention [Not Recovered/Not Resolved]
  - COVID-19 [Unknown]
  - Alopecia [Unknown]
  - Weight increased [Not Recovered/Not Resolved]
  - Fall [Unknown]
  - Contusion [Unknown]
  - Weight loss poor [Unknown]
  - Therapeutic response unexpected [Recovering/Resolving]
  - Herpes zoster [Unknown]
  - Muscle spasms [Unknown]
  - Pain in extremity [Unknown]
  - Rash pruritic [Unknown]
  - Nausea [Unknown]
  - Headache [Not Recovered/Not Resolved]
  - Dizziness [Unknown]
  - Pruritus [Unknown]
  - Rash [Unknown]

NARRATIVE: CASE EVENT DATE: 20211121
